FAERS Safety Report 10563086 (Version 1)
Quarter: 2014Q4

REPORT INFORMATION
  Report Type: Spontaneous
  Country: US (occurrence: None)
  Receive Date: 20141103
  Receipt Date: 20141103
  Transmission Date: 20150529
  Serious: Yes (Hospitalization, Disabling)
  Sender: FDA-Public Use
  Company Number: None

PATIENT

DRUGS (1)
  1. LIDOCAINE. [Suspect]
     Active Substance: LIDOCAINE
     Indication: PRODUCT USED FOR UNKNOWN INDICATION
     Dates: start: 20110615, end: 20120830

REACTIONS (3)
  - Hypoaesthesia [None]
  - Exposure via partner [None]
  - Oligomenorrhoea [None]

NARRATIVE: CASE EVENT DATE: 20140326
